FAERS Safety Report 4425250-X (Version None)
Quarter: 2004Q3

REPORT INFORMATION
  Report Type: 
  Country: None (occurrence: None)
  Receive Date: 20040813
  Receipt Date: 20040630
  Transmission Date: 20050211
  Serious: Yes (Death, Other)
  Sender: FDA-Public Use
  Company Number: JP-BRISTOL-MYERS SQUIBB COMPANY-12629549

PATIENT
  Age: 73 Year
  Sex: Female

DRUGS (1)
  1. TAXOL [Suspect]
     Indication: BREAST CANCER
     Route: 041
     Dates: start: 20040609, end: 20040623

REACTIONS (13)
  - BLOOD PRESSURE DECREASED [None]
  - BREAST CANCER FEMALE [None]
  - CYANOSIS [None]
  - FIBRIN DEGRADATION PRODUCTS INCREASED [None]
  - LOSS OF CONSCIOUSNESS [None]
  - MALIGNANT NEOPLASM PROGRESSION [None]
  - NEUTROPHIL COUNT DECREASED [None]
  - PERIPHERAL COLDNESS [None]
  - PLATELET COUNT DECREASED [None]
  - PNEUMONIA [None]
  - PROTHROMBIN TIME SHORTENED [None]
  - RESPIRATORY FAILURE [None]
  - WHITE BLOOD CELL COUNT DECREASED [None]
